FAERS Safety Report 25524237 (Version 1)
Quarter: 2025Q3

REPORT INFORMATION
  Report Type: Spontaneous
  Country: AU (occurrence: None)
  Receive Date: 20250707
  Receipt Date: 20250707
  Transmission Date: 20251021
  Serious: Yes (Other)
  Sender: ORION
  Company Number: AU-PFIZER INC-202500133090

PATIENT
  Age: 50 Year
  Sex: Male

DRUGS (3)
  1. METHOTREXATE [Suspect]
     Active Substance: METHOTREXATE
     Indication: Sarcoidosis
  2. PREDNISOLONE [Suspect]
     Active Substance: PREDNISOLONE
     Indication: Product used for unknown indication
  3. PREDNISOLONE [Suspect]
     Active Substance: PREDNISOLONE

REACTIONS (2)
  - Sarcoidosis [Not Recovered/Not Resolved]
  - Product use in unapproved indication [Unknown]
